FAERS Safety Report 19635502 (Version 2)
Quarter: 2021Q4

REPORT INFORMATION
  Report Type: Spontaneous
  Country: GA (occurrence: GA)
  Receive Date: 20210730
  Receipt Date: 20211006
  Transmission Date: 20220303
  Serious: Yes (Other)
  Sender: FDA-Public Use
  Company Number: NVSC2021GA166921

PATIENT

DRUGS (6)
  1. AZITHROMYCIN ANHYDROUS [Suspect]
     Active Substance: AZITHROMYCIN ANHYDROUS
     Indication: Foetal exposure during pregnancy
     Dosage: MOTHER DOSE: 500 MG D 1ND 250 MG/D FOR 4 D
     Route: 064
  2. HYDROXYCHLOROQUINE [Suspect]
     Active Substance: HYDROXYCHLOROQUINE
     Indication: Foetal exposure during pregnancy
     Dosage: MOTHER DOSE: 200 MG BID FOR 10 DAYS
     Route: 064
  3. VITAMIN C [Suspect]
     Active Substance: ASCORBIC ACID
     Indication: Foetal exposure during pregnancy
     Dosage: MOTHER DOSE: 500 MG/DAY FOR 10 DAYS
     Route: 064
  4. ZINC [Suspect]
     Active Substance: ZINC
     Indication: Foetal exposure during pregnancy
     Dosage: MOTHER DOSE: 15 MG/DAY FOR 10 DAYS
     Route: 064
  5. NICARDIPINE [Suspect]
     Active Substance: NICARDIPINE
     Indication: Foetal exposure during pregnancy
     Dosage: MOTHER DOSE: 10 MG/ML
     Route: 064
  6. DEXAMETHASONE [Suspect]
     Active Substance: DEXAMETHASONE
     Indication: Foetal exposure during pregnancy
     Dosage: MOTHER DOSE: 10 MG/ML
     Route: 064

REACTIONS (2)
  - Premature baby [Unknown]
  - Foetal exposure during pregnancy [Unknown]
